FAERS Safety Report 19736111 (Version 2)
Quarter: 2021Q3

REPORT INFORMATION
  Report Type: Spontaneous
  Country: CN (occurrence: CN)
  Receive Date: 20210824
  Receipt Date: 20210902
  Transmission Date: 20211014
  Serious: Yes (Other)
  Sender: FDA-Public Use
  Company Number: CN-GALDERMA-CN2021015398

PATIENT

DRUGS (3)
  1. ADAPALENE. [Suspect]
     Active Substance: ADAPALENE
     Indication: ACNE
     Dosage: 1 DOSAGE FORM, QD (QN)
     Route: 061
     Dates: start: 2014, end: 2015
  2. BENZIHEX 5% (BENZOYL PEROXIDE) [Suspect]
     Active Substance: BENZOYL PEROXIDE
     Indication: ACNE
     Dosage: 1 DOSAGE FORM, (TWO TIMES EVERY 3 DAYS)
     Route: 061
     Dates: start: 201406
  3. BENZIHEX 5% (BENZOYL PEROXIDE) [Suspect]
     Active Substance: BENZOYL PEROXIDE
     Dosage: 1 DOSAGE FORM, QD
     Route: 061
     Dates: end: 20210813

REACTIONS (4)
  - Intentional product misuse [Recovered/Resolved]
  - Platelet count decreased [Unknown]
  - Intentional underdose [Recovered/Resolved]
  - Haemorrhage subcutaneous [Recovering/Resolving]

NARRATIVE: CASE EVENT DATE: 201406
